FAERS Safety Report 16049642 (Version 1)
Quarter: 2019Q1

REPORT INFORMATION
  Report Type: Spontaneous
  Country: US (occurrence: US)
  Receive Date: 20190307
  Receipt Date: 20190307
  Transmission Date: 20190418
  Serious: Yes (Death, Other)
  Sender: FDA-Public Use
  Company Number: US-009507513-1903USA002057

PATIENT
  Age: 72 Year
  Sex: Male

DRUGS (2)
  1. ENZALUTAMIDE [Suspect]
     Active Substance: ENZALUTAMIDE
     Indication: PROSTATE CANCER
     Dosage: UNK, ONCE DAILY
     Route: 048
  2. PROSCAR [Suspect]
     Active Substance: FINASTERIDE
     Indication: PROSTATE CANCER
     Dosage: UNK UNK, ONCE DAILY
     Route: 048

REACTIONS (2)
  - Death [Fatal]
  - Product use in unapproved indication [Unknown]

NARRATIVE: CASE EVENT DATE: 20180912
